FAERS Safety Report 17169883 (Version 1)
Quarter: 2019Q4

REPORT INFORMATION
  Report Type: Spontaneous
  Country: GB (occurrence: GB)
  Receive Date: 20191218
  Receipt Date: 20191218
  Transmission Date: 20200122
  Serious: Yes (Other)
  Sender: FDA-Public Use
  Company Number: GB-TEVA-2019-GB-1149094

PATIENT
  Sex: Male

DRUGS (1)
  1. ISOSORBIDE. [Suspect]
     Active Substance: ISOSORBIDE
     Route: 065

REACTIONS (3)
  - Diarrhoea [Recovered/Resolved]
  - Melaena [Recovered/Resolved]
  - Abdominal pain upper [Not Recovered/Not Resolved]
